FAERS Safety Report 21203321 (Version 2)
Quarter: 2022Q3

REPORT INFORMATION
  Report Type: Spontaneous
  Country: US (occurrence: US)
  Receive Date: 20220811
  Receipt Date: 20220818
  Transmission Date: 20221027
  Serious: No
  Sender: FDA-Public Use
  Company Number: US-SUNOVION-2022SUN002394

PATIENT
  Sex: Female

DRUGS (1)
  1. LATUDA [Suspect]
     Active Substance: LURASIDONE HYDROCHLORIDE
     Indication: Affective disorder
     Dosage: 20 MG
     Route: 048

REACTIONS (3)
  - Emotional poverty [Recovered/Resolved]
  - Bradyphrenia [Recovered/Resolved]
  - Off label use [Unknown]
